FAERS Safety Report 19915014 (Version 2)
Quarter: 2021Q4

REPORT INFORMATION
  Report Type: Spontaneous
  Country: ES (occurrence: None)
  Receive Date: 20211004
  Receipt Date: 20211111
  Transmission Date: 20220303
  Serious: Yes (Other)
  Sender: FDA-Public Use
  Company Number: 2021A757614

PATIENT
  Age: 85 Year
  Sex: Male

DRUGS (7)
  1. CRESTOR [Suspect]
     Active Substance: ROSUVASTATIN CALCIUM
     Indication: Blood cholesterol abnormal
     Route: 048
     Dates: start: 2019
  2. CRESTOR [Suspect]
     Active Substance: ROSUVASTATIN CALCIUM
     Indication: Cardiac valve sclerosis
     Route: 048
     Dates: start: 2019
  3. ASPIRIN [Concomitant]
     Active Substance: ASPIRIN
     Route: 065
     Dates: start: 202109
  4. DUTASTERIDE\TAMSULOSIN [Concomitant]
     Active Substance: DUTASTERIDE\TAMSULOSIN
  5. EXFORGE [Concomitant]
     Active Substance: AMLODIPINE BESYLATE\VALSARTAN
  6. DIOVAN [Concomitant]
     Active Substance: VALSARTAN
  7. AMLODIPINO CINFA [Concomitant]

REACTIONS (2)
  - Cerebral microhaemorrhage [Recovered/Resolved]
  - Gingival bleeding [Recovered/Resolved]
